FAERS Safety Report 8572813 (Version 2)
Quarter: 2012Q4

REPORT INFORMATION
  Report Type: 
  Country: BR (occurrence: BR)
  Receive Date: 20120522
  Receipt Date: 20121116
  Transmission Date: 20130627
  Serious: Yes (Hospitalization, Other)
  Sender: FDA-Public Use
  Company Number: BR-BAYER-2012-049075

PATIENT
  Age: 44 Year
  Sex: Female

DRUGS (3)
  1. BETAFERON [Suspect]
     Indication: MULTIPLE SCLEROSIS
     Dosage: 8 miu, QOD
     Route: 058
     Dates: start: 2004, end: 20110521
  2. ALPRAZOLAM [Concomitant]
     Indication: GENERAL BODY PAIN
     Dosage: 1 DF, QD
     Route: 048
     Dates: start: 2004
  3. SERTRALIN [Concomitant]
     Indication: GENERAL BODY PAIN
     Dosage: 1 DF, QD
     Route: 048
     Dates: start: 2004

REACTIONS (3)
  - Haemangioma of liver [Not Recovered/Not Resolved]
  - Breast cancer female [Recovered/Resolved]
  - Polycystic ovaries [Not Recovered/Not Resolved]
